FAERS Safety Report 6266567-6 (Version None)
Quarter: 2009Q3

REPORT INFORMATION
  Report Type: 
  Country: None (occurrence: None)
  Receive Date: 20090709
  Receipt Date: 20090626
  Transmission Date: 20100115
  Serious: Yes (Other)
  Sender: FDA-Public Use
  Company Number: 235382K09USA

PATIENT
  Age: 53 Year
  Sex: Female
  Weight: 59 kg

DRUGS (4)
  1. REBIF [Suspect]
     Indication: MULTIPLE SCLEROSIS
     Dosage: 44 MCG, 3 IN 1 WEEKS, SUBCUTANEOUS
     Route: 058
     Dates: start: 20080714
  2. VESICARE (SOLIFENANCIN) [Concomitant]
  3. FLUTICASONE (FLUTICASONE /00972201/) [Concomitant]
  4. ENPRESSE-2B (EUGYNON) [Concomitant]

REACTIONS (4)
  - HAEMOGLOBIN DECREASED [None]
  - HEADACHE [None]
  - HEREDITARY HAEMOCHROMATOSIS [None]
  - TYPE 2 DIABETES MELLITUS [None]
